FAERS Safety Report 7159163-X (Version None)
Quarter: 2010Q4

REPORT INFORMATION
  Report Type: 
  Country: None (occurrence: None)
  Receive Date: 20101214
  Receipt Date: 20101202
  Transmission Date: 20110411
  Serious: Yes (Hospitalization, Other)
  Sender: FDA-Public Use
  Company Number: CA-ELI_LILLY_AND_COMPANY-CA201012001806

PATIENT
  Age: 85 Year
  Sex: Female

DRUGS (10)
  1. FORTEO [Suspect]
     Indication: OSTEOPOROSIS
     Dosage: 20 UG, DAILY (1/D)
     Route: 058
     Dates: start: 20090730, end: 20101118
  2. APO-TRIMIP [Concomitant]
  3. LIPITOR [Concomitant]
  4. APO-LORAZEPAM [Concomitant]
  5. SYNTHROID [Concomitant]
  6. HYDROMORPHONE [Concomitant]
  7. NEXIUM [Concomitant]
  8. VITAMIN B-12 [Concomitant]
  9. CALCIUM [Concomitant]
  10. VITAMIN D [Concomitant]

REACTIONS (2)
  - FALL [None]
  - HIP FRACTURE [None]
